FAERS Safety Report 4667589-9 (Version None)
Quarter: 2005Q2

REPORT INFORMATION
  Report Type: 
  Country: None (occurrence: None)
  Receive Date: 20050502
  Receipt Date: 20040518
  Transmission Date: 20051028
  Serious: Yes (Death)
  Sender: FDA-Public Use
  Company Number: 1610

PATIENT
  Age: 56 Year
  Sex: Female

DRUGS (2)
  1. ONTAK [Suspect]
     Dates: start: 20040510, end: 20040514
  2. UNSPECIFIED CHEMOTHERAPEUTIC AGENTS [Concomitant]

REACTIONS (1)
  - CARDIOVASCULAR DISORDER [None]
